FAERS Safety Report 12849370 (Version 5)
Quarter: 2017Q1

REPORT INFORMATION
  Report Type: Report from Study
  Country: BR (occurrence: BR)
  Receive Date: 20161014
  Receipt Date: 20170228
  Transmission Date: 20170428
  Serious: Yes (Other)
  Sender: FDA-Public Use
  Company Number: BR-JNJFOC-20160817717

PATIENT
  Age: 70 Year
  Sex: Female
  Weight: 87 kg

DRUGS (15)
  1. ATENOLOL. [Concomitant]
     Active Substance: ATENOLOL
     Route: 065
  2. ANGIOPRESS [Concomitant]
     Active Substance: CAPTOPRIL
     Indication: HYPERTENSION
     Dates: start: 2006
  3. IMBRUVICA [Suspect]
     Active Substance: IBRUTINIB
     Indication: CHRONIC LYMPHOCYTIC LEUKAEMIA
     Route: 048
     Dates: start: 20160330
  4. FLUNARIZINE [Concomitant]
     Active Substance: FLUNARIZINE
  5. IMBRUVICA [Suspect]
     Active Substance: IBRUTINIB
     Indication: LYMPHOCYTIC LYMPHOMA
     Route: 048
     Dates: start: 20160330
  6. IMBRUVICA [Suspect]
     Active Substance: IBRUTINIB
     Indication: CHRONIC LYMPHOCYTIC LEUKAEMIA
     Route: 048
     Dates: start: 20160330
  7. SINVASTACOR [Concomitant]
     Active Substance: SIMVASTATIN
     Route: 065
  8. FRONTAL [Concomitant]
     Active Substance: ALPRAZOLAM
     Dates: start: 2006
  9. IMBRUVICA [Suspect]
     Active Substance: IBRUTINIB
     Indication: LYMPHOCYTIC LYMPHOMA
     Route: 048
     Dates: start: 20160330
  10. DRAMAMINE [Concomitant]
     Active Substance: DIMENHYDRINATE
  11. GLIFAGE [Concomitant]
     Active Substance: METFORMIN HYDROCHLORIDE
     Indication: DIABETES MELLITUS MANAGEMENT
     Route: 065
  12. PONSTAN [Concomitant]
     Active Substance: MEFENAMIC ACID
  13. OMEPRAZOLE. [Concomitant]
     Active Substance: OMEPRAZOLE
  14. PROLIVE [Concomitant]
  15. RITMONORM [Concomitant]
     Active Substance: PROPAFENONE HYDROCHLORIDE
     Route: 065

REACTIONS (16)
  - Depression [Unknown]
  - Urinary tract infection [Unknown]
  - Constipation [Unknown]
  - Decreased appetite [Unknown]
  - Asthenia [Unknown]
  - Nausea [Recovering/Resolving]
  - Dizziness [Recovered/Resolved]
  - Platelet disorder [Recovered/Resolved]
  - Dysstasia [Unknown]
  - Influenza [Unknown]
  - Hypoaesthesia [Unknown]
  - Vertigo [Unknown]
  - Arrhythmia [Unknown]
  - Cough [Unknown]
  - Haemorrhage [Unknown]
  - Anaemia [Unknown]

NARRATIVE: CASE EVENT DATE: 201609
